FAERS Safety Report 8295063-X (Version None)
Quarter: 2012Q2

REPORT INFORMATION
  Report Type: 
  Country: None (occurrence: None)
  Receive Date: 20120418
  Receipt Date: 20120412
  Transmission Date: 20120825
  Serious: Yes (Other)
  Sender: FDA-Public Use
  Company Number: US-ABBOTT-12P-163-0926220-00

PATIENT
  Age: 60 Year
  Sex: Female

DRUGS (1)
  1. HUMIRA [Suspect]
     Indication: PRODUCT USED FOR UNKNOWN INDICATION
     Route: 058
     Dates: start: 20111012, end: 20120408

REACTIONS (5)
  - ANAPHYLACTIC REACTION [None]
  - ALLERGIC RESPIRATORY SYMPTOM [None]
  - DYSPNOEA [None]
  - ANXIETY [None]
  - SWELLING [None]
